FAERS Safety Report 7708905-0 (Version None)
Quarter: 2011Q3

REPORT INFORMATION
  Report Type: 
  Country: None (occurrence: None)
  Receive Date: 20110825
  Receipt Date: 20110816
  Transmission Date: 20111222
  Serious: Yes (Other)
  Sender: FDA-Public Use
  Company Number: FR-UCBSA-035863

PATIENT
  Sex: Male

DRUGS (3)
  1. XYZAL [Suspect]
     Indication: PRURIGO
     Route: 048
     Dates: start: 20110615, end: 20110619
  2. ATORVASTATIN CALCIUM [Concomitant]
     Indication: HYPERCHOLESTEROLAEMIA
     Route: 048
  3. XYZAL [Suspect]
     Indication: PRURITUS ALLERGIC
     Route: 048
     Dates: start: 20110615, end: 20110619

REACTIONS (4)
  - MALAISE [None]
  - SOMNOLENCE [None]
  - ALCOHOL INTERACTION [None]
  - PRESYNCOPE [None]
